FAERS Safety Report 5506844-7 (Version None)
Quarter: 2007Q4

REPORT INFORMATION
  Report Type: 
  Country: None (occurrence: None)
  Receive Date: 20071105
  Receipt Date: 20071024
  Transmission Date: 20080405
  Serious: Yes (Death, Other)
  Sender: FDA-Public Use
  Company Number: JP-SHR-JP-2007-037296

PATIENT
  Age: 60 Year
  Sex: Male

DRUGS (6)
  1. FLUDARABINE PHOSPHATE [Suspect]
     Indication: CORD BLOOD TRANSPLANT THERAPY
     Dosage: 30 MG/KG, UNK
     Dates: start: 20050101, end: 20050101
  2. BUSULFAN [Suspect]
     Indication: CORD BLOOD TRANSPLANT THERAPY
     Dosage: 4 MG/KG, UNK
     Dates: start: 20050101, end: 20050101
  3. TACROLIMUS [Concomitant]
     Dosage: .03 MG/KG, UNK
     Route: 042
     Dates: start: 20050101, end: 20050101
  4. CIPROFLOXACIN [Concomitant]
     Dates: start: 20050101, end: 20050101
  5. ITRACONAZOLE [Concomitant]
     Indication: ANTIFUNGAL PROPHYLAXIS
     Dates: start: 20050101, end: 20050101
  6. ACYCLOVIR [Concomitant]
     Indication: ANTIVIRAL PROPHYLAXIS
     Dates: start: 20050101, end: 20050101

REACTIONS (4)
  - HYPOVOLAEMIC SHOCK [None]
  - IMMUNE SYSTEM DISORDER [None]
  - PULMONARY ALVEOLAR HAEMORRHAGE [None]
  - THROMBOCYTOPENIA [None]
